FAERS Safety Report 4879694-2 (Version None)
Quarter: 2006Q1

REPORT INFORMATION
  Report Type: 
  Country: None (occurrence: None)
  Receive Date: 20060111
  Receipt Date: 20051227
  Transmission Date: 20060701
  Serious: Yes (Death)
  Sender: FDA-Public Use
  Company Number: 2006-US-00039

PATIENT
  Age: 69 Year
  Sex: Female

DRUGS (1)
  1. CLOZAPINE [Suspect]
     Indication: SCHIZOAFFECTIVE DISORDER
     Dosage: 250 MG, QD, ORAL
     Route: 048
     Dates: start: 20040101, end: 20040601

REACTIONS (3)
  - DEPRESSION [None]
  - DYSPHAGIA [None]
  - SCHIZOAFFECTIVE DISORDER [None]
